FAERS Safety Report 10815817 (Version 1)
Quarter: 2015Q1

REPORT INFORMATION
  Report Type: Report from Study
  Country: US (occurrence: US)
  Receive Date: 20150218
  Receipt Date: 20150218
  Transmission Date: 20150721
  Serious: No
  Sender: FDA-Public Use
  Company Number: US-ABBVIE-14K-163-1282673-00

PATIENT
  Age: 5 Year
  Sex: Female

DRUGS (4)
  1. ALLEGRA [Concomitant]
     Active Substance: FEXOFENADINE HYDROCHLORIDE
     Indication: HOUSE DUST ALLERGY
  2. METHOTREXATE [Concomitant]
     Active Substance: METHOTREXATE
     Indication: UVEITIS
  3. HUMIRA [Suspect]
     Active Substance: ADALIMUMAB
     Indication: UVEITIS
     Dates: start: 201301
  4. HUMIRA [Suspect]
     Active Substance: ADALIMUMAB
     Dates: start: 2014

REACTIONS (4)
  - Product use issue [Unknown]
  - Cough [Recovered/Resolved]
  - Uveitis [Unknown]
  - Cough [Not Recovered/Not Resolved]

NARRATIVE: CASE EVENT DATE: 201301
